FAERS Safety Report 7075244-3 (Version None)
Quarter: 2010Q4

REPORT INFORMATION
  Report Type: 
  Country: None (occurrence: None)
  Receive Date: 20101030
  Receipt Date: 20100614
  Transmission Date: 20110411
  Serious: No
  Sender: FDA-Public Use
  Company Number: US-WYE-H15875810

PATIENT
  Age: 72 Year
  Sex: Female
  Weight: 61.74 kg

DRUGS (3)
  1. ADVIL PM [Suspect]
     Indication: ARTHRALGIA
     Dosage: 2 CAPLETS BEFORE SLEEP
     Route: 048
     Dates: start: 20100501, end: 20100601
  2. ADVIL PM [Suspect]
     Indication: INSOMNIA
  3. GABAPENTIN [Concomitant]

REACTIONS (1)
  - DRUG EFFECT DECREASED [None]
